FAERS Safety Report 8795834 (Version 8)
Quarter: 2022Q3

REPORT INFORMATION
  Report Type: Report from Study
  Country: GB (occurrence: GB)
  Receive Date: 20120919
  Receipt Date: 20220914
  Transmission Date: 20221027
  Serious: Yes (Hospitalization)
  Sender: FDA-Public Use
  Company Number: GB-SHIRE-ALL1-2012-04350

PATIENT
  Age: 19 Year
  Sex: Male
  Weight: 81 kg

DRUGS (12)
  1. ICATIBANT [Suspect]
     Active Substance: ICATIBANT ACETATE
     Indication: Hereditary angioedema
     Dosage: 30 MILLIGRAM
     Route: 058
     Dates: start: 20101118
  2. ICATIBANT [Suspect]
     Active Substance: ICATIBANT ACETATE
     Indication: Hereditary angioedema
     Dosage: 30 MILLIGRAM
     Route: 058
     Dates: start: 20101118
  3. ICATIBANT [Suspect]
     Active Substance: ICATIBANT ACETATE
     Dosage: UNK
     Route: 065
     Dates: start: 20120716
  4. ICATIBANT [Suspect]
     Active Substance: ICATIBANT ACETATE
     Dosage: UNK
     Route: 065
     Dates: start: 20120716
  5. DANAZOL [Concomitant]
     Active Substance: DANAZOL
     Indication: Prophylaxis
     Dosage: 100 MILLIGRAM, 2/WEEK
     Route: 048
     Dates: start: 20101214
  6. DANAZOL [Concomitant]
     Active Substance: DANAZOL
     Dosage: 100 MILLIGRAM
     Route: 048
     Dates: start: 20131119, end: 20140818
  7. PREDNISOLONE [Concomitant]
     Active Substance: PREDNISOLONE
     Indication: Swelling
     Dosage: 5 MILLIGRAM
     Route: 065
     Dates: start: 20120903
  8. PREDNISOLONE [Concomitant]
     Active Substance: PREDNISOLONE
     Dosage: 5 MILLIGRAM, QD
     Route: 048
     Dates: start: 20120904, end: 20120906
  9. RANITIDINE HYDROCHLORIDE [Concomitant]
     Active Substance: RANITIDINE HYDROCHLORIDE
     Indication: Chest pain
     Dosage: UNK UNK, QID
     Route: 048
     Dates: start: 20120912
  10. RANITIDINE HYDROCHLORIDE [Concomitant]
     Active Substance: RANITIDINE HYDROCHLORIDE
     Indication: Abdominal pain upper
  11. ACETAMINOPHEN\CODEINE PHOSPHATE [Concomitant]
     Active Substance: ACETAMINOPHEN\CODEINE PHOSPHATE
     Indication: Pain
     Dosage: 2 DOSAGE FORM, Q4HR
     Route: 048
     Dates: start: 20120717
  12. CINRYZE [Concomitant]
     Active Substance: HUMAN C1-ESTERASE INHIBITOR
     Indication: Hereditary angioedema
     Dosage: 1500 INTERNATIONAL UNIT
     Route: 042
     Dates: start: 20120928

REACTIONS (1)
  - Gastritis [Recovered/Resolved]

NARRATIVE: CASE EVENT DATE: 20120717
